FAERS Safety Report 5802780-7 (Version None)
Quarter: 2008Q2

REPORT INFORMATION
  Report Type: 
  Country: None (occurrence: None)
  Receive Date: 20080627
  Receipt Date: 20080311
  Transmission Date: 20081010
  Serious: Yes (Disabling)
  Sender: FDA-Public Use
  Company Number: PHEH2008US02191

PATIENT
  Age: 70 Year
  Sex: Female
  Weight: 77.6 kg

DRUGS (4)
  1. RECLAST [Suspect]
     Indication: OSTEOPOROSIS
     Dosage: 5 MG, ANNUALLY, INFUSION
     Dates: start: 20080117
  2. ULTRAM [Concomitant]
  3. RELAFEN [Concomitant]
  4. LYRICA [Concomitant]

REACTIONS (3)
  - BONE PAIN [None]
  - HEADACHE [None]
  - MYALGIA [None]
